FAERS Safety Report 8920202 (Version 2)
Quarter: 2013Q1

REPORT INFORMATION
  Report Type: Spontaneous
  Country: US (occurrence: US)
  Receive Date: 20121122
  Receipt Date: 20130122
  Transmission Date: 20140127
  Serious: Yes (Other)
  Sender: FDA-Public Use
  Company Number: US-ROCHE-791195

PATIENT
  Age: 16 Year
  Sex: Male
  Weight: 79.45 kg

DRUGS (2)
  1. ACCUTANE [Suspect]
     Indication: ACNE
     Route: 048
     Dates: start: 20030910, end: 200310
  2. ACCUTANE [Suspect]
     Route: 048
     Dates: start: 20040430, end: 20050216

REACTIONS (6)
  - Colitis ulcerative [Unknown]
  - Inflammatory bowel disease [Unknown]
  - Stress [Unknown]
  - Lip dry [Unknown]
  - Hepatic enzyme increased [Unknown]
  - Dysplastic naevus [Unknown]
